FAERS Safety Report 7561373-4 (Version None)
Quarter: 2011Q2

REPORT INFORMATION
  Report Type: 
  Country: None (occurrence: None)
  Receive Date: 20110621
  Receipt Date: 20100628
  Transmission Date: 20111010
  Serious: No
  Sender: FDA-Public Use
  Company Number: US-ASTRAZENECA-2010SE30124

PATIENT
  Age: 78 Year
  Sex: Female
  Weight: 68 kg

DRUGS (1)
  1. PULMICORT [Suspect]
     Route: 055
     Dates: start: 20070101

REACTIONS (3)
  - FATIGUE [None]
  - TREMOR [None]
  - TOOTH DISORDER [None]
